FAERS Safety Report 15029589 (Version 4)
Quarter: 2018Q3

REPORT INFORMATION
  Report Type: Spontaneous
  Country: JP (occurrence: JP)
  Receive Date: 20180619
  Receipt Date: 20180730
  Transmission Date: 20181010
  Serious: Yes (Death, Life-Threatening, Other)
  Sender: FDA-Public Use
  Company Number: JP-JNJFOC-20180621996

PATIENT
  Age: 62 Year
  Sex: Female
  Weight: 64 kg

DRUGS (7)
  1. PRODIF [Concomitant]
     Active Substance: FOSFLUCONAZOLE
     Route: 042
     Dates: start: 20171123, end: 20171128
  2. FILGRASTIM BS [Concomitant]
     Active Substance: FILGRASTIM
     Route: 058
     Dates: start: 20171121
  3. TAZOPIPE [Concomitant]
     Active Substance: PIPERACILLIN SODIUM\TAZOBACTAM SODIUM
     Route: 065
  4. NEUTROGIN [Concomitant]
     Active Substance: LENOGRASTIM
     Indication: BONE MARROW FAILURE
     Route: 058
     Dates: start: 20171123, end: 20171129
  5. DOXORUBICIN HYDROCHLORIDE. [Suspect]
     Active Substance: DOXORUBICIN HYDROCHLORIDE
     Indication: OVARIAN CANCER
     Route: 042
     Dates: start: 20171109
  6. RAMOSETRON HYDROCHLORIDE [Concomitant]
     Active Substance: RAMOSETRON HYDROCHLORIDE
     Indication: OVARIAN CANCER
     Route: 042
     Dates: start: 20171109
  7. CEFEPIME HYDROCHLORIDE. [Concomitant]
     Active Substance: CEFEPIME HYDROCHLORIDE
     Route: 042
     Dates: start: 20171123, end: 20171128

REACTIONS (8)
  - Gastrointestinal mucosal disorder [Fatal]
  - Disseminated intravascular coagulation [Fatal]
  - Duodenal obstruction [Unknown]
  - Pneumonia aspiration [Recovered/Resolved]
  - Oesophageal haemorrhage [Unknown]
  - Bone marrow failure [Not Recovered/Not Resolved]
  - Ovarian cancer [Fatal]
  - Oral disorder [Unknown]

NARRATIVE: CASE EVENT DATE: 2017
